FAERS Safety Report 9077493 (Version 1)
Quarter: 2013Q1

REPORT INFORMATION
  Report Type: Spontaneous
  Country: US (occurrence: US)
  Receive Date: 20130130
  Receipt Date: 20130130
  Transmission Date: 20140127
  Serious: Yes (Other)
  Sender: FDA-Public Use
  Company Number: US-BRISTOL-MYERS SQUIBB COMPANY-17268574

PATIENT
  Age: 55 Year
  Sex: Female
  Weight: 122 kg

DRUGS (1)
  1. ABATACEPT SUBQ INJECTION 125MG/ML [Suspect]
     Indication: RHEUMATOID ARTHRITIS
     Dosage: LAST INJ:08JAN13
     Route: 058
     Dates: end: 20130108

REACTIONS (2)
  - Arthropathy [Unknown]
  - Infection [Unknown]
